FAERS Safety Report 8625196-7 (Version None)
Quarter: 2012Q3

REPORT INFORMATION
  Report Type: 
  Country: None (occurrence: None)
  Receive Date: 20120827
  Receipt Date: 20120818
  Transmission Date: 20120928
  Serious: Yes (Death)
  Sender: FDA-Public Use
  Company Number: VN-BAXTER-2012BAX014832

PATIENT
  Age: 60 Year
  Sex: Male

DRUGS (2)
  1. DIANEAL [Suspect]
     Dosage: 3BAGS/DAY
     Route: 033
     Dates: start: 20110701, end: 20120731
  2. DIANEAL [Suspect]
     Dosage: 1BAG/DAY
     Route: 033
     Dates: start: 20110701, end: 20120731

REACTIONS (1)
  - CARDIOVASCULAR DISORDER [None]
